FAERS Safety Report 14381475 (Version 31)
Quarter: 2021Q2

REPORT INFORMATION
  Report Type: Spontaneous
  Country: BR (occurrence: BR)
  Receive Date: 20180112
  Receipt Date: 20210623
  Transmission Date: 20210716
  Serious: No
  Sender: FDA-Public Use
  Company Number: BR-IPSEN BIOPHARMACEUTICALS, INC.-2016-09723

PATIENT
  Age: 48 Year
  Sex: Male

DRUGS (10)
  1. LOSARTAN. [Concomitant]
     Active Substance: LOSARTAN
     Indication: HYPERTENSION
     Dosage: TWICE A DAY
     Route: 048
  2. LEVOTHYROXINE. [Concomitant]
     Active Substance: LEVOTHYROXINE
     Indication: HORMONE REPLACEMENT THERAPY
     Dosage: QD
     Route: 048
     Dates: start: 2008
  3. ATENOLOL. [Interacting]
     Active Substance: ATENOLOL
     Indication: HYPERTENSION
     Dosage: QD
     Route: 048
  4. CALCIUM + D [Concomitant]
     Active Substance: CALCIUM\VITAMIN D
     Indication: HYPOTHYROIDISM
     Dosage: TWICE A DAY
     Route: 048
     Dates: start: 2008
  5. COVID?19 VACCINE [Concomitant]
     Dates: start: 20210420, end: 20210420
  6. GLIFAGE [Concomitant]
     Active Substance: METFORMIN HYDROCHLORIDE
     Indication: DIABETES MELLITUS
     Dosage: QD
     Route: 048
     Dates: start: 2016
  7. SOMATULINE AUTOGEL [Suspect]
     Active Substance: LANREOTIDE ACETATE
     Indication: ACROMEGALY
     Dosage: 120 MG (ABOVE THE BUTTOCKS)
     Route: 030
     Dates: start: 201610
  8. AMLODIPINE [Concomitant]
     Active Substance: AMLODIPINE BESYLATE
     Indication: HYPERTENSION
     Dosage: TWICE A DAY
     Route: 048
  9. TAMSULOSIN HYDROCHLORIDE. [Concomitant]
     Active Substance: TAMSULOSIN HYDROCHLORIDE
     Indication: PROSTATOMEGALY
  10. CALCITRIOL. [Concomitant]
     Active Substance: CALCITRIOL
     Indication: MINERAL SUPPLEMENTATION
     Dosage: THRICE A DAY
     Route: 048
     Dates: start: 2008

REACTIONS (32)
  - Prostatomegaly [Recovered/Resolved]
  - Abdominal distension [Recovered/Resolved]
  - Injection site mass [Unknown]
  - Injection site fibrosis [Not Recovered/Not Resolved]
  - Pyrexia [Recovered/Resolved]
  - Headache [Recovered/Resolved]
  - Faeces discoloured [Unknown]
  - Inappropriate schedule of product administration [Unknown]
  - Incorrect route of product administration [Unknown]
  - Injection site mass [Not Recovered/Not Resolved]
  - Injection site pain [Recovered/Resolved]
  - Abdominal distension [Recovered/Resolved]
  - Wrong technique in product usage process [Unknown]
  - Drug interaction [Unknown]
  - Faeces discoloured [Recovered/Resolved]
  - Spinal pain [Recovered/Resolved]
  - Osteoarthritis [Recovered/Resolved]
  - Product administered at inappropriate site [Unknown]
  - Gastrointestinal disorder [Not Recovered/Not Resolved]
  - Asthenia [Recovered/Resolved]
  - Abdominal distension [Recovered/Resolved]
  - Application site pain [Unknown]
  - Breath odour [Recovered/Resolved]
  - Hypersensitivity [Recovered/Resolved]
  - Injection site erythema [Recovered/Resolved]
  - Product dose omission issue [Unknown]
  - Product availability issue [Unknown]
  - Urinary tract infection [Not Recovered/Not Resolved]
  - Injection site nodule [Recovered/Resolved]
  - Abdominal distension [Recovered/Resolved]
  - Flatulence [Recovered/Resolved]
  - Sciatica [Recovering/Resolving]

NARRATIVE: CASE EVENT DATE: 2016
